FAERS Safety Report 17242361 (Version 1)
Quarter: 2020Q1

REPORT INFORMATION
  Report Type: Spontaneous
  Country: US (occurrence: US)
  Receive Date: 20200107
  Receipt Date: 20200107
  Transmission Date: 20200409
  Serious: No
  Sender: FDA-Public Use
  Company Number: US-NEOS THERAPEUTICS, LP-2019NEO00055

PATIENT
  Age: 6 Year
  Sex: Male
  Weight: 28.57 kg

DRUGS (3)
  1. ARIPIPRAZOLE. [Concomitant]
     Active Substance: ARIPIPRAZOLE
  2. CLONIDINE. [Concomitant]
     Active Substance: CLONIDINE
  3. COTEMPLA XR-ODT [Suspect]
     Active Substance: METHYLPHENIDATE
     Indication: ATTENTION DEFICIT/HYPERACTIVITY DISORDER
     Dosage: 8.6 MG, 1X/DAY IN THE MORNING
     Route: 048
     Dates: start: 20191102

REACTIONS (3)
  - Impulsive behaviour [Not Recovered/Not Resolved]
  - Defiant behaviour [Not Recovered/Not Resolved]
  - Psychomotor hyperactivity [Not Recovered/Not Resolved]

NARRATIVE: CASE EVENT DATE: 20191102
